FAERS Safety Report 6463790-2 (Version None)
Quarter: 2009Q4

REPORT INFORMATION
  Report Type: 
  Country: None (occurrence: None)
  Receive Date: 20091201
  Receipt Date: 20091127
  Transmission Date: 20100525
  Serious: Yes (Life-Threatening, Other)
  Sender: FDA-Public Use
  Company Number: JP-JNJFOC-20091101162

PATIENT
  Sex: Female
  Weight: 58 kg

DRUGS (14)
  1. ITRIZOLE [Suspect]
     Indication: SYSTEMIC MYCOSIS
     Route: 048
     Dates: start: 20090930, end: 20091007
  2. IDARUBICIN HYDROCHLORIDE [Suspect]
     Indication: CHEMOTHERAPY
  3. CYTARABINE [Suspect]
     Indication: CHEMOTHERAPY
  4. ZOVIRAX [Concomitant]
     Indication: HERPES VIRUS INFECTION
     Route: 048
     Dates: start: 20090930, end: 20091007
  5. MUCOSTA [Concomitant]
     Indication: GASTRIC ULCER
     Route: 048
     Dates: start: 20090930
  6. ISODINE [Concomitant]
     Route: 002
  7. ALOSITOL [Concomitant]
     Indication: HYPERURICAEMIA
     Route: 048
     Dates: start: 20090930, end: 20091007
  8. BIOFERMIN R [Concomitant]
     Indication: ACUTE MYELOID LEUKAEMIA
     Route: 048
     Dates: start: 20090930
  9. CRAVIT [Concomitant]
     Indication: ACUTE MYELOID LEUKAEMIA
     Route: 048
  10. BAKTAR [Concomitant]
     Indication: PNEUMOCYSTIS JIROVECI PNEUMONIA
     Route: 048
     Dates: start: 20090930
  11. CALONAL [Concomitant]
     Indication: ACUTE MYELOID LEUKAEMIA
     Route: 048
     Dates: start: 20091001
  12. MAGMITT [Concomitant]
     Indication: CONSTIPATION
     Route: 048
     Dates: start: 20091002, end: 20091014
  13. CONCENTRATED RED CELLS [Concomitant]
     Route: 041
     Dates: start: 20090930, end: 20091026
  14. PLATELETS [Concomitant]
     Route: 041
     Dates: start: 20090930, end: 20091026

REACTIONS (3)
  - ATRIOVENTRICULAR BLOCK [None]
  - NAUSEA [None]
  - VOMITING [None]
